FAERS Safety Report 9980793 (Version 2)
Quarter: 2015Q4

REPORT INFORMATION
  Report Type: Report from Study
  Country: US (occurrence: US)
  Receive Date: 20140307
  Receipt Date: 20151110
  Transmission Date: 20160305
  Serious: Yes (Life-Threatening, Hospitalization, Other)
  Sender: FDA-Public Use
  Company Number: US-ROCHE-1333588

PATIENT
  Age: 75 Year
  Sex: Female

DRUGS (12)
  1. OXYGEN. [Concomitant]
     Active Substance: OXYGEN
     Route: 065
  2. LUCENTIS [Suspect]
     Active Substance: RANIBIZUMAB
     Indication: RETINAL NEOVASCULARISATION
     Dosage: THERAPY DATE: FEB/2007,23/MAR/2011, 01/JUN/2011, 20/JUL/2011, 31/AUG/2011, 12/OCT/2011, 23/NOV/2011,
     Route: 050
  3. LUCENTIS [Suspect]
     Active Substance: RANIBIZUMAB
     Indication: NEOVASCULAR AGE-RELATED MACULAR DEGENERATION
  4. MICARDIS [Concomitant]
     Active Substance: TELMISARTAN
     Route: 065
  5. TRETINOIN. [Concomitant]
     Active Substance: TRETINOIN
     Route: 065
  6. OCUVITE PRESERVISION [Concomitant]
  7. PAXIL (UNITED STATES) [Concomitant]
     Route: 065
  8. SYNTHROID [Concomitant]
     Active Substance: LEVOTHYROXINE SODIUM
     Dosage: 88 MCG
     Route: 065
  9. TOPROL XL [Concomitant]
     Active Substance: METOPROLOL SUCCINATE
     Route: 065
  10. ASPIRIN. [Concomitant]
     Active Substance: ASPIRIN
     Route: 065
  11. TYLENOL [Concomitant]
     Active Substance: ACETAMINOPHEN
  12. XANAX [Concomitant]
     Active Substance: ALPRAZOLAM

REACTIONS (7)
  - Pneumonia [Unknown]
  - Chronic obstructive pulmonary disease [Unknown]
  - Visual acuity reduced [Unknown]
  - Anxiety [Unknown]
  - Deafness [Unknown]
  - Contusion [Unknown]
  - Lung neoplasm malignant [Unknown]

NARRATIVE: CASE EVENT DATE: 201106
